FAERS Safety Report 5782015-4 (Version None)
Quarter: 2008Q2

REPORT INFORMATION
  Report Type: 
  Country: None (occurrence: None)
  Receive Date: 20080618
  Receipt Date: 20080610
  Transmission Date: 20081010
  Serious: Yes (Hospitalization, Other)
  Sender: FDA-Public Use
  Company Number: 2008AL006693

PATIENT
  Age: 66 Year
  Sex: Female
  Weight: 44.2 kg

DRUGS (7)
  1. METFORMIN HYDROCHLORIDE [Suspect]
     Dosage: 1.5 G;QD;PO
     Route: 048
     Dates: start: 19940101
  2. BLINDED THERAPY [Concomitant]
  3. GLIBENCLAMIDE [Concomitant]
  4. AMLODIPINE [Concomitant]
  5. ATENOLOL [Concomitant]
  6. HYDROCHLOROTHIAZIDE [Concomitant]
  7. OSCAL [Concomitant]

REACTIONS (5)
  - ABASIA [None]
  - HEPATIC FUNCTION ABNORMAL [None]
  - HYPOGLYCAEMIA [None]
  - THYROID FUNCTION TEST ABNORMAL [None]
  - TRANSIENT ISCHAEMIC ATTACK [None]
